FAERS Safety Report 20884226 (Version 1)
Quarter: 2022Q2

REPORT INFORMATION
  Report Type: Spontaneous
  Country: US (occurrence: US)
  Receive Date: 20220527
  Receipt Date: 20220527
  Transmission Date: 20220720
  Serious: Yes (Other)
  Sender: FDA-Public Use
  Company Number: US-PFIZER INC-202200747336

PATIENT

DRUGS (1)
  1. PAXLOVID [Suspect]
     Active Substance: NIRMATRELVIR\RITONAVIR
     Indication: COVID-19 treatment
     Dosage: UNK

REACTIONS (9)
  - Suicidal ideation [Unknown]
  - Back pain [Unknown]
  - Hepatic pain [Unknown]
  - Nausea [Unknown]
  - Movement disorder [Unknown]
  - Pain in extremity [Unknown]
  - Pain [Unknown]
  - Myalgia [Unknown]
  - Feeling abnormal [Unknown]
